FAERS Safety Report 6808860-1 (Version None)
Quarter: 2010Q2

REPORT INFORMATION
  Report Type: 
  Country: None (occurrence: None)
  Receive Date: 20100630
  Receipt Date: 20091012
  Transmission Date: 20101027
  Serious: No
  Sender: FDA-Public Use
  Company Number: US-PFIZER INC-2009256719

PATIENT
  Sex: Female

DRUGS (6)
  1. TIKOSYN [Suspect]
     Indication: ATRIAL FIBRILLATION
     Dosage: 500 UG, 2X/DAY
     Dates: start: 20060401
  2. NAPROXEN [Concomitant]
     Dosage: UNK
  3. VITAMIN B COMPLEX CAP [Concomitant]
     Dosage: UNK
  4. LISINOPRIL [Concomitant]
  5. HYDROCHLOROTHIAZIDE [Concomitant]
  6. POTASSIUM [Concomitant]
     Dosage: UNK

REACTIONS (1)
  - FIBROMYALGIA [None]
